FAERS Safety Report 7758625-1 (Version None)
Quarter: 2011Q3

REPORT INFORMATION
  Report Type: 
  Country: None (occurrence: None)
  Receive Date: 20110919
  Receipt Date: 20100510
  Transmission Date: 20111222
  Serious: No
  Sender: FDA-Public Use
  Company Number: US-BAYER-201022548NA

PATIENT
  Age: 32 Year
  Sex: Female

DRUGS (2)
  1. MIRENA [Suspect]
     Indication: CONTRACEPTION
     Dosage: 20 MCG/24HR, CONT
     Route: 015
     Dates: start: 20061101
  2. OXAPROZIN [Concomitant]
     Indication: ARTHRITIS
     Dosage: UNK
     Dates: end: 20100101

REACTIONS (4)
  - METRORRHAGIA [None]
  - AMENORRHOEA [None]
  - OVARIAN CYST [None]
  - ABDOMINAL PAIN LOWER [None]
